FAERS Safety Report 17225475 (Version 3)
Quarter: 2025Q4

REPORT INFORMATION
  Report Type: Report from Study
  Country: JP (occurrence: JP)
  Receive Date: 20200102
  Receipt Date: 20251008
  Transmission Date: 20260117
  Serious: Yes (Other)
  Sender: EMD SERONO INC
  Company Number: JP-MERCK HEALTHCARE KGAA-9123511

PATIENT
  Age: 76 Year
  Sex: Male

DRUGS (3)
  1. BAVENCIO [Suspect]
     Active Substance: AVELUMAB
     Indication: Neuroendocrine carcinoma of the skin
     Dosage: SPEED OF BAVENCIO WAS 200ML/HR
     Dates: start: 20190409, end: 20190801
  2. ACETAMINOPHEN [Concomitant]
     Active Substance: ACETAMINOPHEN
     Indication: Premedication
     Dates: start: 20190716, end: 20190801
  3. CHLORPHENIRAMINE                   /00072501/ [Concomitant]
     Indication: Premedication
     Dates: start: 20190716, end: 20190801

REACTIONS (1)
  - Cerebellar ataxia [Recovering/Resolving]

NARRATIVE: CASE EVENT DATE: 20190802
